FAERS Safety Report 6047927-5 (Version None)
Quarter: 2009Q1

REPORT INFORMATION
  Report Type: 
  Country: None (occurrence: None)
  Receive Date: 20090123
  Receipt Date: 20090114
  Transmission Date: 20090719
  Serious: Yes (Other)
  Sender: FDA-Public Use
  Company Number: JP-BAYER-200813063BYL

PATIENT
  Age: 83 Year
  Sex: Male
  Weight: 57 kg

DRUGS (17)
  1. NEXAVAR [Suspect]
     Indication: RENAL CELL CARCINOMA STAGE IV
     Dosage: TOTAL DAILY DOSE: 800 MG  UNIT DOSE: 200 MG
     Route: 048
     Dates: start: 20081117
  2. NEXAVAR [Suspect]
     Dosage: UNIT DOSE: 200 MG
     Route: 048
     Dates: start: 20081128, end: 20081205
  3. SUTENT [Concomitant]
     Indication: RENAL CELL CARCINOMA STAGE IV
     Route: 048
  4. MAGMITT [Concomitant]
     Indication: RENAL CELL CARCINOMA STAGE IV
     Dosage: UNIT DOSE: 330 MG
     Route: 048
  5. HARNAL D [Concomitant]
     Indication: RENAL CELL CARCINOMA STAGE IV
     Dosage: UNIT DOSE: 0.2 MG
     Route: 048
  6. MAINTATE [Concomitant]
     Indication: RENAL CELL CARCINOMA STAGE IV
     Dosage: UNIT DOSE: 5 MG
     Route: 048
  7. AMLODIN OD [Concomitant]
     Indication: RENAL CELL CARCINOMA STAGE IV
     Dosage: UNIT DOSE: 5 MG
     Route: 048
     Dates: end: 20081117
  8. GASTER D [Concomitant]
     Indication: RENAL CELL CARCINOMA STAGE IV
     Dosage: UNIT DOSE: 10 MG
     Route: 048
     Dates: end: 20081117
  9. ASPIRIN [Concomitant]
     Indication: RENAL CELL CARCINOMA STAGE IV
     Dosage: UNIT DOSE: 100 MG
     Route: 048
     Dates: start: 20081105
  10. PANALDINE [Concomitant]
     Indication: RENAL CELL CARCINOMA STAGE IV
     Dosage: UNIT DOSE: 100 MG
     Route: 048
     Dates: start: 20081105, end: 20081205
  11. OLMETEC [Concomitant]
     Indication: RENAL CELL CARCINOMA STAGE IV
     Dosage: UNIT DOSE: 20 MG
     Route: 048
     Dates: start: 20081205
  12. OLMETEC [Concomitant]
     Dosage: UNIT DOSE: 20 MG
     Route: 048
     Dates: start: 20081113, end: 20081205
  13. ITOROL [Concomitant]
     Indication: RENAL CELL CARCINOMA STAGE IV
     Dosage: UNIT DOSE: 20 MG
     Route: 048
     Dates: start: 20081113
  14. LIPITOR [Concomitant]
     Indication: RENAL CELL CARCINOMA STAGE IV
     Dosage: UNIT DOSE: 10 MG
     Route: 048
     Dates: start: 20081117
  15. FAMOTIDINE D [Concomitant]
     Indication: RENAL CELL CARCINOMA STAGE IV
     Dosage: UNIT DOSE: 20 MG
     Route: 048
     Dates: start: 20081118
  16. PLAVIX [Concomitant]
     Indication: RENAL CELL CARCINOMA STAGE IV
     Dosage: UNIT DOSE: 75 MG
     Route: 048
     Dates: start: 20081205
  17. PL [Concomitant]
     Indication: RENAL CELL CARCINOMA STAGE IV
     Route: 048
     Dates: start: 20081121, end: 20081123

REACTIONS (3)
  - CARDIAC FAILURE [None]
  - HEPATIC FUNCTION ABNORMAL [None]
  - HYPERTENSION [None]
